FAERS Safety Report 25665006 (Version 1)
Quarter: 2025Q3

REPORT INFORMATION
  Report Type: Spontaneous
  Country: US (occurrence: None)
  Receive Date: 20250809
  Receipt Date: 20250809
  Transmission Date: 20251020
  Serious: Yes (Hospitalization, Disabling, Other)
  Sender: FDA-CTU
  Company Number: None

PATIENT
  Age: 50 Year
  Sex: Female
  Weight: 56.25 kg

DRUGS (10)
  1. MOUNJARO [Suspect]
     Active Substance: TIRZEPATIDE
     Indication: Glucose tolerance impaired
     Route: 030
     Dates: start: 20231205, end: 20240701
  2. OZEMPIC [Suspect]
     Active Substance: SEMAGLUTIDE
     Indication: Glucose tolerance impaired
     Route: 030
     Dates: end: 20240712
  3. LAMOTRIGINE [Suspect]
     Active Substance: LAMOTRIGINE
  4. VALTREX [Concomitant]
     Active Substance: VALACYCLOVIR HYDROCHLORIDE
  5. ADDERALL [Concomitant]
     Active Substance: AMPHETAMINE ASPARTATE\AMPHETAMINE SULFATE\DEXTROAMPHETAMINE SACCHARATE\DEXTROAMPHETAMINE SULFATE
  6. PRISTIQ EXTENDED-RELEASE [Concomitant]
     Active Substance: DESVENLAFAXINE SUCCINATE
  7. CRESTOR [Concomitant]
     Active Substance: ROSUVASTATIN CALCIUM
  8. SYNTHROID [Concomitant]
     Active Substance: LEVOTHYROXINE SODIUM
  9. PRIMIDONE [Concomitant]
     Active Substance: PRIMIDONE
  10. OXYCODONE [Concomitant]
     Active Substance: OXYCODONE

REACTIONS (8)
  - Speech disorder [None]
  - Seizure [None]
  - Vertigo [None]
  - Diplopia [None]
  - Vomiting [None]
  - Paraesthesia [None]
  - Toxicity to various agents [None]
  - Nervous system disorder [None]

NARRATIVE: CASE EVENT DATE: 20240213
